FAERS Safety Report 4816670-X (Version None)
Quarter: 2005Q4

REPORT INFORMATION
  Report Type: 
  Country: None (occurrence: None)
  Receive Date: 20051028
  Receipt Date: 20051020
  Transmission Date: 20060501
  Serious: Yes (Other)
  Sender: FDA-Public Use
  Company Number: 2005138891

PATIENT
  Sex: Female

DRUGS (2)
  1. NEURONTIN [Suspect]
     Indication: NEUROPATHY
  2. TEGRETOL [Suspect]
     Indication: ILL-DEFINED DISORDER
     Dosage: ORAL
     Route: 048

REACTIONS (8)
  - CONDITION AGGRAVATED [None]
  - DIABETES MELLITUS [None]
  - ECONOMIC PROBLEM [None]
  - FALL [None]
  - NERVE INJURY [None]
  - NEUROPATHY PERIPHERAL [None]
  - ROAD TRAFFIC ACCIDENT [None]
  - URINARY RETENTION [None]
